FAERS Safety Report 14813170 (Version 1)
Quarter: 2018Q2

REPORT INFORMATION
  Report Type: Report from Study
  Country: None (occurrence: BE)
  Receive Date: 20180426
  Receipt Date: 20180426
  Transmission Date: 20180711
  Serious: Yes (Hospitalization)
  Sender: FDA-Public Use
  Company Number: BE-ABBVIE-18K-013-2279536-00

PATIENT
  Sex: Male

DRUGS (4)
  1. DUODOPA [Suspect]
     Active Substance: CARBIDOPA\LEVODOPA
     Dosage: DOSES CONTINUOUSLY MONITORED AND ADAPTED
     Route: 050
     Dates: start: 20140310, end: 20161128
  2. DUODOPA [Suspect]
     Active Substance: CARBIDOPA\LEVODOPA
     Dosage: MD= 0ML?CD= 2.1 ML/HR DURING 16HRS (DECREASED)?ED=0.6ML?ND=1.6ML/HR DURING 8HRS
     Route: 050
     Dates: start: 20180419
  3. DUODOPA [Suspect]
     Active Substance: CARBIDOPA\LEVODOPA
     Indication: PARKINSON^S DISEASE
     Dosage: MD=2.5 ML?CD=2 ML/HR DURING 16HRS ?ED=0.8 ML
     Route: 050
     Dates: start: 20080310, end: 20140310
  4. DUODOPA [Suspect]
     Active Substance: CARBIDOPA\LEVODOPA
     Dosage: MD=2.5ML?CD=2.8ML/HR DURING 16HRS ?ED=1.4ML?ND=1.6ML/HR DURING 8HRS
     Route: 050
     Dates: start: 20161128, end: 20180419

REACTIONS (7)
  - On and off phenomenon [Recovering/Resolving]
  - Agitation [Unknown]
  - Hypoaesthesia [Unknown]
  - Feeling abnormal [Unknown]
  - Tremor [Not Recovered/Not Resolved]
  - Polyneuropathy [Recovering/Resolving]
  - Dyskinesia [Recovering/Resolving]
